FAERS Safety Report 8846586 (Version 2)
Quarter: 2012Q4

REPORT INFORMATION
  Report Type: 
  Country: US (occurrence: US)
  Receive Date: 20121017
  Receipt Date: 20121031
  Transmission Date: 20130627
  Serious: Yes (Other)
  Sender: FDA-Public Use
  Company Number: US-ROCHE-1142611

PATIENT
  Sex: Female

DRUGS (1)
  1. AVASTIN [Suspect]
     Indication: AGE-RELATED MACULAR DEGENERATION
     Route: 050

REACTIONS (6)
  - Endophthalmitis [Unknown]
  - Vitreous floaters [Unknown]
  - Retinal detachment [Unknown]
  - Glaucoma [Unknown]
  - Uveitis [Unknown]
  - Iridocyclitis [Unknown]
